FAERS Safety Report 14812853 (Version 1)
Quarter: 2018Q2

REPORT INFORMATION
  Report Type: Spontaneous
  Country: US (occurrence: US)
  Receive Date: 20180426
  Receipt Date: 20180426
  Transmission Date: 20180711
  Serious: Yes (Other)
  Sender: FDA-Public Use
  Company Number: US-CIPLA (EU) LIMITED-2018US16534

PATIENT

DRUGS (1)
  1. TOPIRAMATE. [Suspect]
     Active Substance: TOPIRAMATE
     Indication: PRODUCT USED FOR UNKNOWN INDICATION
     Dosage: UNK
     Route: 065

REACTIONS (8)
  - Insomnia [Recovering/Resolving]
  - Product substitution issue [Unknown]
  - Migraine [Recovering/Resolving]
  - Dyskinesia [Recovering/Resolving]
  - Muscle twitching [Recovering/Resolving]
  - Increased appetite [Recovering/Resolving]
  - Paraesthesia [Recovering/Resolving]
  - Depression [Recovering/Resolving]
